FAERS Safety Report 8181551-3 (Version None)
Quarter: 2012Q1

REPORT INFORMATION
  Report Type: 
  Country: None (occurrence: None)
  Receive Date: 20120302
  Receipt Date: 20120216
  Transmission Date: 20120608
  Serious: Yes (Other)
  Sender: FDA-Public Use
  Company Number: US-FRI-1000028493

PATIENT
  Age: 45 Year
  Sex: Female

DRUGS (2)
  1. VIIBRYD [Suspect]
     Dosage: 20 MG
     Dates: start: 20120101, end: 20120101
  2. VIIBRYD [Suspect]
     Indication: DEPRESSION
     Dosage: 10 MG
     Dates: start: 20120101, end: 20120101

REACTIONS (3)
  - DIARRHOEA [None]
  - NIGHT BLINDNESS [None]
  - VOMITING [None]
